FAERS Safety Report 13567481 (Version 8)
Quarter: 2017Q3

REPORT INFORMATION
  Report Type: Spontaneous
  Country: US (occurrence: US)
  Receive Date: 20170522
  Receipt Date: 20170828
  Transmission Date: 20171127
  Serious: Yes (Other)
  Sender: FDA-Public Use
  Company Number: US-PFIZER INC-2017219920

PATIENT
  Age: 90 Year
  Sex: Female
  Weight: 63 kg

DRUGS (9)
  1. LOVASTATIN. [Concomitant]
     Active Substance: LOVASTATIN
     Indication: BLOOD CHOLESTEROL INCREASED
     Dosage: 20 MG, 1X/DAY
     Route: 048
  2. TEMAZEPAM. [Concomitant]
     Active Substance: TEMAZEPAM
     Indication: SLEEP DISORDER
     Dosage: UNK, AS NEEDED (15 MG TAKES HALF OF A PILL - 7.5 MG PILL BY MOUTH AS NEEDED)
     Route: 048
  3. COENZYME Q10 [Concomitant]
     Active Substance: UBIDECARENONE
     Indication: SUPPLEMENTATION THERAPY
     Dosage: 100 MG, 1X/DAY
     Route: 048
  4. SUTENT [Suspect]
     Active Substance: SUNITINIB MALATE
     Indication: RENAL CELL CARCINOMA
     Dosage: 25 MG, CYCLIC (ONCE A DAY 2 WEEKS ON AND ONE WEEK OFF )
     Route: 048
     Dates: start: 20170418
  5. SUTENT [Suspect]
     Active Substance: SUNITINIB MALATE
     Dosage: 25 MG, UNK
     Dates: start: 20170530
  6. LEVOTHYROXINE. [Concomitant]
     Active Substance: LEVOTHYROXINE
     Indication: THYROID DISORDER
     Dosage: 88 UG, 1X/DAY
     Route: 048
  7. SUTENT [Suspect]
     Active Substance: SUNITINIB MALATE
     Indication: LYMPHOMA
     Dosage: 50 MG, UNK
  8. SUTENT [Suspect]
     Active Substance: SUNITINIB MALATE
     Dosage: 25 MG, CYCLIC (EVERY OTHER DAY FOR 2 WEEKS AND THEN OFF)
     Dates: start: 20170522
  9. BABY ASPIRIN [Concomitant]
     Active Substance: ASPIRIN
     Dosage: 81 MG, ALTERNATE DAY (EVERY OTHER DAY)
     Route: 048

REACTIONS (30)
  - Deafness [Unknown]
  - Visual impairment [Unknown]
  - Confusional state [Unknown]
  - Asthenopia [Unknown]
  - Hypertension [Not Recovered/Not Resolved]
  - Headache [Recovered/Resolved]
  - Malaise [Unknown]
  - Head discomfort [Unknown]
  - Poor quality drug administered [Unknown]
  - Balance disorder [Recovering/Resolving]
  - Ageusia [Unknown]
  - Hypoacusis [Unknown]
  - Dysgeusia [Unknown]
  - Loss of personal independence in daily activities [Recovering/Resolving]
  - Tongue exfoliation [Unknown]
  - Pain in extremity [Unknown]
  - Anxiety [Unknown]
  - Eyelid ptosis [Unknown]
  - Asthenia [Recovering/Resolving]
  - Arthritis [Unknown]
  - Dizziness [Unknown]
  - Crying [Unknown]
  - Pain [Unknown]
  - Hypersomnia [Unknown]
  - Depressed mood [Unknown]
  - Oral pain [Recovering/Resolving]
  - Product coating issue [Unknown]
  - Gait inability [Unknown]
  - Photopsia [Unknown]
  - Fatigue [Unknown]

NARRATIVE: CASE EVENT DATE: 2017
